FAERS Safety Report 8461503-6 (Version None)
Quarter: 2012Q2

REPORT INFORMATION
  Report Type: 
  Country: None (occurrence: None)
  Receive Date: 20120619
  Receipt Date: 20120619
  Transmission Date: 20120825
  Serious: Yes (Other)
  Sender: FDA-Public Use
  Company Number: None

PATIENT
  Sex: Male

DRUGS (1)
  1. CLINDAMYCIN [Suspect]
     Dosage: 300MG QID PO
     Route: 048
     Dates: start: 20120612, end: 20120613

REACTIONS (4)
  - URTICARIA [None]
  - RASH [None]
  - ERYTHEMA [None]
  - SKIN DEPIGMENTATION [None]
